FAERS Safety Report 9478353 (Version 1)
Quarter: 2013Q3

REPORT INFORMATION
  Report Type: Spontaneous
  Country: US (occurrence: US)
  Receive Date: 20130827
  Receipt Date: 20130827
  Transmission Date: 20140515
  Serious: Yes (Other)
  Sender: FDA-Public Use
  Company Number: US-JNJFOC-20130810146

PATIENT
  Sex: Female
  Weight: 81.65 kg

DRUGS (6)
  1. REMICADE [Suspect]
     Indication: CROHN^S DISEASE
     Route: 042
  2. GABAPENTIN [Concomitant]
     Indication: ARTHRALGIA
     Route: 048
     Dates: start: 2008
  3. GABAPENTIN [Concomitant]
     Indication: NEUROPATHY PERIPHERAL
     Route: 048
     Dates: start: 2008
  4. PROGESTERONE [Concomitant]
     Indication: CALCIUM DEFICIENCY
     Route: 048
     Dates: start: 2003
  5. INSULIN [Concomitant]
     Indication: TYPE 2 DIABETES MELLITUS
     Dosage: DOSE VARIES
     Route: 065
  6. ESTRADIOL [Concomitant]
     Route: 048
     Dates: start: 2003

REACTIONS (1)
  - Intervertebral disc protrusion [Not Recovered/Not Resolved]
